FAERS Safety Report 9410112 (Version 1)
Quarter: 2013Q3

REPORT INFORMATION
  Report Type: Spontaneous
  Country: CO (occurrence: CO)
  Receive Date: 20130719
  Receipt Date: 20130719
  Transmission Date: 20140515
  Serious: Yes (Other)
  Sender: FDA-Public Use
  Company Number: CO-PFIZER INC-2013212029

PATIENT
  Age: 74 Year
  Sex: Female

DRUGS (3)
  1. LYRICA [Suspect]
     Indication: OSTEOPOROSIS
     Dosage: 150 MG, 1X/DAY
     Route: 048
     Dates: start: 2009
  2. ENALAPRIL [Concomitant]
     Indication: HYPERTENSION
     Dosage: UNK
     Dates: start: 2009
  3. OMEPRAZOL [Concomitant]
     Indication: GASTRITIS
     Dosage: 20 MG, 1X/DAY
     Route: 048
     Dates: start: 2010

REACTIONS (4)
  - Off label use [Unknown]
  - Thyroid disorder [Unknown]
  - Bone pain [Unknown]
  - Insomnia [Unknown]
